FAERS Safety Report 7656145-6 (Version None)
Quarter: 2011Q3

REPORT INFORMATION
  Report Type: 
  Country: None (occurrence: None)
  Receive Date: 20110801
  Receipt Date: 20110525
  Transmission Date: 20111222
  Serious: Yes (Other)
  Sender: FDA-Public Use
  Company Number: 2011SP034171

PATIENT
  Age: 42 Year
  Sex: Female
  Weight: 64 kg

DRUGS (3)
  1. VALACICLOVIR [Suspect]
     Dosage: 1000 MG;TID
  2. VOLTAREN [Concomitant]
  3. CERAZETTE (DESOGESTREL /00754001/) [Suspect]
     Dosage: 1 DF;QD

REACTIONS (2)
  - METRORRHAGIA [None]
  - HERPES ZOSTER [None]
